FAERS Safety Report 7015163-1 (Version None)
Quarter: 2010Q3

REPORT INFORMATION
  Report Type: 
  Country: None (occurrence: None)
  Receive Date: 20100927
  Receipt Date: 20090826
  Transmission Date: 20110219
  Serious: No
  Sender: FDA-Public Use
  Company Number: US-ASTRAZENECA-2009SE09900

PATIENT
  Age: 36 Year
  Sex: Male
  Weight: 81.6 kg

DRUGS (2)
  1. ARIMIDEX [Suspect]
     Indication: ANTIOESTROGEN THERAPY
     Route: 048
     Dates: start: 20090601
  2. MELATONIN [Concomitant]

REACTIONS (4)
  - BODY FAT DISORDER [None]
  - DIARRHOEA [None]
  - INITIAL INSOMNIA [None]
  - NIGHTMARE [None]
